FAERS Safety Report 20737144 (Version 1)
Quarter: 2022Q2

REPORT INFORMATION
  Report Type: Spontaneous
  Country: US (occurrence: US)
  Receive Date: 20220421
  Receipt Date: 20220421
  Transmission Date: 20220721
  Serious: No
  Sender: FDA-Public Use
  Company Number: US-PFIZER INC-202101813108

PATIENT
  Age: 13 Year
  Sex: Male

DRUGS (21)
  1. EUCRISA [Suspect]
     Active Substance: CRISABOROLE
     Indication: Dermatitis atopic
     Dosage: 1 DF, 2X/DAY
     Route: 061
  2. EUCRISA [Suspect]
     Active Substance: CRISABOROLE
     Indication: Skin abrasion
  3. EUCRISA [Suspect]
     Active Substance: CRISABOROLE
     Indication: Lichenification
  4. EUCRISA [Suspect]
     Active Substance: CRISABOROLE
     Indication: Post inflammatory pigmentation change
  5. EUCRISA [Suspect]
     Active Substance: CRISABOROLE
     Indication: Inflammation
  6. EUCRISA [Suspect]
     Active Substance: CRISABOROLE
     Indication: Xerosis
  7. EUCRISA [Suspect]
     Active Substance: CRISABOROLE
     Indication: Pruritus
  8. ALCLOMETASONE [Concomitant]
     Active Substance: ALCLOMETASONE
     Indication: Dermatitis atopic
     Dosage: 1 DF, 2X/DAY
     Route: 061
  9. ALCLOMETASONE [Concomitant]
     Active Substance: ALCLOMETASONE
     Indication: Skin abrasion
  10. ALCLOMETASONE [Concomitant]
     Active Substance: ALCLOMETASONE
     Indication: Lichenification
  11. ALCLOMETASONE [Concomitant]
     Active Substance: ALCLOMETASONE
     Indication: Post inflammatory pigmentation change
  12. ALCLOMETASONE [Concomitant]
     Active Substance: ALCLOMETASONE
     Indication: Inflammation
  13. ALCLOMETASONE [Concomitant]
     Active Substance: ALCLOMETASONE
     Indication: Xerosis
  14. ALCLOMETASONE [Concomitant]
     Active Substance: ALCLOMETASONE
     Indication: Pruritus
  15. TRIAMCINOLONE ACETONIDE [Concomitant]
     Active Substance: TRIAMCINOLONE ACETONIDE
     Indication: Dermatitis atopic
     Dosage: 1 DF, 2X/DAY
     Route: 061
  16. TRIAMCINOLONE ACETONIDE [Concomitant]
     Active Substance: TRIAMCINOLONE ACETONIDE
     Indication: Skin abrasion
  17. TRIAMCINOLONE ACETONIDE [Concomitant]
     Active Substance: TRIAMCINOLONE ACETONIDE
     Indication: Lichenification
  18. TRIAMCINOLONE ACETONIDE [Concomitant]
     Active Substance: TRIAMCINOLONE ACETONIDE
     Indication: Post inflammatory pigmentation change
  19. TRIAMCINOLONE ACETONIDE [Concomitant]
     Active Substance: TRIAMCINOLONE ACETONIDE
     Indication: Inflammation
  20. TRIAMCINOLONE ACETONIDE [Concomitant]
     Active Substance: TRIAMCINOLONE ACETONIDE
     Indication: Xerosis
  21. TRIAMCINOLONE ACETONIDE [Concomitant]
     Active Substance: TRIAMCINOLONE ACETONIDE
     Indication: Pruritus

REACTIONS (1)
  - Condition aggravated [Unknown]

NARRATIVE: CASE EVENT DATE: 20211216
